FAERS Safety Report 9740166 (Version 1)
Quarter: 2013Q4

REPORT INFORMATION
  Report Type: Spontaneous
  Country: FR (occurrence: FR)
  Receive Date: 20131209
  Receipt Date: 20131209
  Transmission Date: 20140711
  Serious: Yes (Hospitalization)
  Sender: FDA-Public Use
  Company Number: FR-PFIZER INC-2013345203

PATIENT
  Age: 47 Year
  Sex: Female

DRUGS (4)
  1. CAMPTO [Suspect]
     Indication: RECTOSIGMOID CANCER METASTATIC
     Dosage: 320 MG, CYCLIC
     Route: 041
     Dates: start: 20130731
  2. FLUOROURACILE PFIZER [Suspect]
     Indication: RECTOSIGMOID CANCER METASTATIC
     Dosage: 700 MG, CYCLIC
     Route: 041
     Dates: start: 20130731
  3. AVASTIN [Suspect]
     Indication: RECTOSIGMOID CANCER METASTATIC
     Dosage: 345 MG, SINGLE
     Route: 042
     Dates: start: 20130902, end: 20130902
  4. FOLINIC ACID [Concomitant]

REACTIONS (1)
  - Pulmonary embolism [Recovering/Resolving]
